FAERS Safety Report 9162838 (Version 1)
Quarter: 2013Q1

REPORT INFORMATION
  Report Type: Spontaneous
  Country: FR (occurrence: FR)
  Receive Date: 20130314
  Receipt Date: 20130314
  Transmission Date: 20140127
  Serious: Yes (Other)
  Sender: FDA-Public Use
  Company Number: PHHY2013FR018014

PATIENT
  Age: 23 Year
  Sex: Female
  Weight: 70 kg

DRUGS (1)
  1. GILENYA [Suspect]
     Indication: RELAPSING-REMITTING MULTIPLE SCLEROSIS
     Route: 048
     Dates: start: 20120925, end: 20130125

REACTIONS (6)
  - Lung disorder [Recovered/Resolved]
  - Bronchitis [Recovered/Resolved]
  - Lymphocyte count decreased [Unknown]
  - Conjunctivitis [Recovered/Resolved]
  - Urinary tract infection [Recovered/Resolved]
  - Gastroenteritis [Recovered/Resolved]
